FAERS Safety Report 4752288-5 (Version None)
Quarter: 2005Q3

REPORT INFORMATION
  Report Type: 
  Country: None (occurrence: None)
  Receive Date: 20050825
  Receipt Date: 20050516
  Transmission Date: 20060218
  Serious: Yes (Death)
  Sender: FDA-Public Use
  Company Number: US-BRISTOL-MYERS SQUIBB COMPANY-12971107

PATIENT
  Age: 85 Year
  Sex: Female

DRUGS (5)
  1. HYDREA [Suspect]
     Indication: MYELOFIBROSIS
     Dosage: DURATION OF THERAPY:  } 11 YEARS
     Route: 048
     Dates: end: 20050117
  2. HYDREA [Suspect]
     Indication: THROMBOCYTHAEMIA
     Dosage: DURATION OF THERAPY:  } 11 YEARS
     Route: 048
     Dates: end: 20050117
  3. ZOMETA [Concomitant]
     Route: 042
     Dates: start: 20040701, end: 20050117
  4. THALIDOMIDE [Concomitant]
     Dates: start: 20040701, end: 20050117
  5. DECADRON [Concomitant]
     Dates: start: 20040701, end: 20050117

REACTIONS (2)
  - CEREBROVASCULAR ACCIDENT [None]
  - MULTIPLE MYELOMA [None]
